FAERS Safety Report 6162953-3 (Version None)
Quarter: 2009Q2

REPORT INFORMATION
  Report Type: 
  Country: None (occurrence: None)
  Receive Date: 20090420
  Receipt Date: 20090406
  Transmission Date: 20091009
  Serious: Yes (Other)
  Sender: FDA-Public Use
  Company Number: ALA_00267_2009

PATIENT
  Sex: Female
  Weight: 58.9676 kg

DRUGS (1)
  1. REGLAN [Suspect]
     Indication: SUPPRESSED LACTATION
     Dosage: 10 MG TID ORAL
     Route: 048
     Dates: start: 20090309, end: 20090310

REACTIONS (3)
  - ANXIETY [None]
  - CEREBROVASCULAR ACCIDENT [None]
  - DYSPNOEA [None]
